FAERS Safety Report 25082583 (Version 1)
Quarter: 2025Q1

REPORT INFORMATION
  Report Type: Spontaneous
  Country: US (occurrence: US)
  Receive Date: 20250317
  Receipt Date: 20250317
  Transmission Date: 20250408
  Serious: No
  Sender: BOEHRINGER INGELHEIM
  Company Number: US-Komodo Health-a23aa000006HrFlAAK

PATIENT
  Sex: Female

DRUGS (1)
  1. STIOLTO RESPIMAT [Suspect]
     Active Substance: OLODATEROL HYDROCHLORIDE\TIOTROPIUM BROMIDE MONOHYDRATE
     Indication: Chronic obstructive pulmonary disease

REACTIONS (4)
  - Drug ineffective [Unknown]
  - Gastrooesophageal reflux disease [Not Recovered/Not Resolved]
  - Oropharyngeal pain [Unknown]
  - Pharyngeal erythema [Unknown]
